FAERS Safety Report 8583900 (Version 6)
Quarter: 2014Q2

REPORT INFORMATION
  Report Type: Report from Study
  Country: US (occurrence: US)
  Receive Date: 20120525
  Receipt Date: 20140430
  Transmission Date: 20141212
  Serious: Yes (Hospitalization)
  Sender: FDA-Public Use
  Company Number: US-ROCHE-1060740

PATIENT
  Age: 77 Year
  Sex: Male
  Weight: 66.6 kg

DRUGS (45)
  1. GDC-0980 (PI3K/MTOR INHIBITOR) [Suspect]
     Indication: NEOPLASM
     Dosage: LAST DOSE: 25 MG, DATE OF LAST DOSE PRIOR TO SAE 13/FEB/2012,LAST DOSE: 05/APR/2012
     Route: 048
  2. BEVACIZUMAB [Suspect]
     Indication: NEOPLASM
     Dosage: DATE OF LAST DOS PRIOR TO SAE: 13/FEB/2012,
     Route: 042
  3. PACLITAXEL [Suspect]
     Indication: NEOPLASM
     Dosage: LAST DOSE: 360 MG, DATE OF LAST DOSE PRIOR TO SAE: 13/FEB/2012, LAST DOSE: 05/APR/2012
     Route: 042
  4. CARBOPLATIN [Suspect]
     Indication: NEOPLASM
     Dosage: LAST DOSE: 648 MG, DATE OF LAST DOS PRIOR TO SAE:13/FEB/2012, LAST DOSE: 03/APR/2012
     Route: 042
  5. PEMETREXED [Suspect]
     Indication: NEOPLASM
     Dosage: 21/NOV/2011: LAST DOSE TAKEN PRIOR TO SAE 975MG
     Route: 065
  6. CISPLATIN [Suspect]
     Indication: NEOPLASM
     Dosage: LAST DOSE ON 18/JUL/2011 PRIOR TO SAE:144MG
     Route: 065
  7. ACYCLOVIR [Concomitant]
     Indication: RASH
     Dosage: UNKNOWN
     Route: 065
  8. ACYCLOVIR [Concomitant]
     Indication: HERPES ZOSTER
     Route: 048
     Dates: start: 20120412, end: 20120415
  9. RESTORIL (TEMAZEPAM) [Concomitant]
     Indication: INSOMNIA
     Route: 048
     Dates: start: 20120305
  10. RESTORIL (TEMAZEPAM) [Concomitant]
     Route: 048
     Dates: start: 20120414, end: 20120419
  11. RESTORIL (TEMAZEPAM) [Concomitant]
     Route: 048
     Dates: start: 20120511
  12. PLAVIX [Concomitant]
     Indication: CORONARY ARTERY DISEASE
     Route: 048
     Dates: start: 20110214
  13. ZANTAC [Concomitant]
     Indication: GASTROOESOPHAGEAL REFLUX DISEASE
     Route: 048
     Dates: start: 20120209
  14. ALEVE [Concomitant]
     Indication: OSTEOARTHRITIS
     Route: 048
     Dates: start: 20120217
  15. IMODIUM [Concomitant]
     Indication: DIARRHOEA
     Route: 048
     Dates: start: 20120220
  16. MILK OF MAGNESIA [Concomitant]
     Indication: CONSTIPATION
     Route: 048
     Dates: start: 20120220
  17. ONDANSETRON [Concomitant]
     Indication: NAUSEA
     Route: 048
     Dates: start: 20120227
  18. ONDANSETRON [Concomitant]
     Indication: VOMITING
     Route: 048
     Dates: start: 20120414
  19. DICYCLOMINE [Concomitant]
     Indication: IRRITABLE BOWEL SYNDROME
     Route: 048
     Dates: start: 20120313
  20. DICYCLOMINE [Concomitant]
     Indication: ABDOMINAL PAIN UPPER
     Route: 048
     Dates: start: 20120414, end: 20120512
  21. ROBITUSSIN AC (UNITED STATES) [Concomitant]
     Indication: COUGH
     Route: 048
     Dates: start: 20120604
  22. XANAX [Concomitant]
     Indication: ANXIETY
     Route: 048
     Dates: start: 20120604
  23. HYDROCORTISONE [Concomitant]
     Route: 061
     Dates: start: 20120604
  24. ALBUTEROL [Concomitant]
     Indication: DYSPNOEA
     Route: 050
     Dates: start: 20120515
  25. ALBUTEROL [Concomitant]
     Indication: DYSPNOEA
     Route: 050
     Dates: start: 20120414, end: 20120417
  26. ALBUTEROL [Concomitant]
     Dosage: 2 PUFF
     Route: 050
     Dates: start: 20120419, end: 20120604
  27. TESSALON [Concomitant]
     Indication: COUGH
     Route: 048
     Dates: start: 20120412, end: 20120414
  28. TESSALON [Concomitant]
     Route: 048
     Dates: start: 20120414, end: 20120419
  29. TYLENOL [Concomitant]
     Route: 048
     Dates: start: 20120414, end: 20120419
  30. IBUPROFEN [Concomitant]
     Indication: PAIN
     Route: 048
     Dates: start: 20120414, end: 20120419
  31. CEFEPIME [Concomitant]
     Indication: HERPES ZOSTER
     Route: 042
     Dates: start: 20120414, end: 20120416
  32. NEBCIN [Concomitant]
     Indication: PYREXIA
     Route: 042
     Dates: start: 20120414, end: 20120415
  33. BENADRYL (UNITED STATES) [Concomitant]
     Route: 048
     Dates: start: 20120414, end: 20120419
  34. TESSALON PERLE [Concomitant]
     Route: 048
     Dates: start: 20120414, end: 20120419
  35. FERROUS SULFATE [Concomitant]
     Route: 042
     Dates: start: 20120415, end: 20120418
  36. FERROUS SULFATE [Concomitant]
     Route: 048
     Dates: end: 20120513
  37. TRIFLURIDINE [Concomitant]
     Indication: RASH
     Route: 047
     Dates: start: 20120415, end: 20120513
  38. LASIX [Concomitant]
     Indication: HYPERTENSION
     Route: 042
     Dates: start: 20120415, end: 20120419
  39. FAMCICLOVIR [Concomitant]
     Indication: HERPES ZOSTER
     Route: 048
     Dates: start: 20120416, end: 20120423
  40. METHYLPREDNISOLONE [Concomitant]
     Route: 048
     Dates: start: 20120419, end: 20120604
  41. DEXAMETHASONE [Concomitant]
     Route: 048
     Dates: start: 20120510, end: 20120604
  42. CIPROFLOXACIN [Concomitant]
     Route: 048
     Dates: start: 20120604
  43. CYCLOSPORINE [Concomitant]
     Indication: RASH
     Route: 047
     Dates: start: 20120604
  44. PROCTOFOAM (UNITED STATES) [Concomitant]
     Indication: HAEMORRHOIDS
     Route: 050
     Dates: start: 20120604
  45. ANUSOL (UNITED STATES) [Concomitant]
     Indication: HAEMORRHOIDS
     Route: 065
     Dates: start: 20120604

REACTIONS (2)
  - Neutropenia [Recovered/Resolved]
  - Pneumonia [Recovered/Resolved]
